FAERS Safety Report 7033901-9 (Version None)
Quarter: 2010Q4

REPORT INFORMATION
  Report Type: 
  Country: None (occurrence: None)
  Receive Date: 20101007
  Receipt Date: 20101004
  Transmission Date: 20110411
  Serious: Yes (Hospitalization)
  Sender: FDA-Public Use
  Company Number: US-AMGEN-KDL435958

PATIENT
  Sex: Female

DRUGS (1)
  1. ENBREL [Suspect]
     Indication: RHEUMATOID ARTHRITIS
     Route: 058

REACTIONS (5)
  - ATRIAL FIBRILLATION [None]
  - DEVICE MALFUNCTION [None]
  - DYSPNOEA [None]
  - PULMONARY MASS [None]
  - VIRAL INFECTION [None]
